FAERS Safety Report 22592873 (Version 2)
Quarter: 2023Q2

REPORT INFORMATION
  Report Type: Spontaneous
  Country: US (occurrence: US)
  Receive Date: 20230613
  Receipt Date: 20230620
  Transmission Date: 20230721
  Serious: Yes (Hospitalization, Other)
  Sender: FDA-Public Use
  Company Number: US-ALKEM LABORATORIES LIMITED-US-ALKEM-2023-06319

PATIENT
  Age: 70 Year
  Sex: Female

DRUGS (8)
  1. AZATHIOPRINE [Suspect]
     Active Substance: AZATHIOPRINE
     Indication: Immunosuppressant drug therapy
     Dosage: 50 MILLIGRAM, QD
     Route: 065
  2. MYCOPHENOLATE MOFETIL [Suspect]
     Active Substance: MYCOPHENOLATE MOFETIL
     Indication: Immunosuppressant drug therapy
     Dosage: 500 MILLIGRAM, QD
     Route: 065
  3. TACROLIMUS [Suspect]
     Active Substance: TACROLIMUS
     Indication: Immunosuppressant drug therapy
     Dosage: 4 MILLIGRAM, BID (TWICE DAILY)
     Route: 065
  4. NITAZOXANIDE [Suspect]
     Active Substance: NITAZOXANIDE
     Indication: Gastroenteritis norovirus
     Dosage: 500 MILLIGRAM, BID (3-DAY COURSE)
     Route: 048
  5. NITAZOXANIDE [Suspect]
     Active Substance: NITAZOXANIDE
     Dosage: UNK (LONGER COURSE FOR 3 WEEKS)
     Route: 065
  6. NITAZOXANIDE [Suspect]
     Active Substance: NITAZOXANIDE
     Dosage: 500 MILLIGRAM, TID (HIGH DOSE)
     Route: 065
  7. NITAZOXANIDE [Suspect]
     Active Substance: NITAZOXANIDE
     Dosage: UNK (DOSE DECREASED)
     Route: 065
  8. PREDNISONE [Suspect]
     Active Substance: PREDNISONE
     Indication: Immunosuppressant drug therapy
     Dosage: 5 MILLIGRAM, QD
     Route: 065

REACTIONS (3)
  - Acute kidney injury [Unknown]
  - Gastroenteritis norovirus [Recovered/Resolved]
  - Transplant rejection [Unknown]
